FAERS Safety Report 12394242 (Version 1)
Quarter: 2016Q2

REPORT INFORMATION
  Report Type: Spontaneous
  Country: BR (occurrence: BR)
  Receive Date: 20160523
  Receipt Date: 20160523
  Transmission Date: 20160815
  Serious: Yes (Congenital Anomaly)
  Sender: FDA-Public Use
  Company Number: BR-PFIZER INC-2016227617

PATIENT
  Sex: Female

DRUGS (2)
  1. DOSTINEX [Suspect]
     Active Substance: CABERGOLINE
     Indication: PROLACTINOMA
     Dosage: 1 TABLET OF 0.5 MG PER WEEK HALF ON TUESDAY AND HALF ON THURSDAY
     Route: 064
     Dates: start: 2011
  2. DOSTINEX [Suspect]
     Active Substance: CABERGOLINE
     Indication: PITUITARY TUMOUR BENIGN

REACTIONS (2)
  - Cerebral ventricle dilatation [Unknown]
  - Maternal exposure during pregnancy [Unknown]
